FAERS Safety Report 11616484 (Version 1)
Quarter: 2015Q4

REPORT INFORMATION
  Report Type: Spontaneous
  Country: FR (occurrence: FR)
  Receive Date: 20151009
  Receipt Date: 20151009
  Transmission Date: 20160304
  Serious: Yes (Hospitalization)
  Sender: FDA-Public Use
  Company Number: FR-SA-2015SA149978

PATIENT
  Age: 85 Year
  Sex: Female

DRUGS (9)
  1. LASILIX FAIBLE [Suspect]
     Active Substance: FUROSEMIDE
     Route: 048
     Dates: end: 20150719
  2. DOMPERIDONE [Suspect]
     Active Substance: DOMPERIDONE
     Route: 048
  3. KALEORID [Concomitant]
     Active Substance: POTASSIUM CHLORIDE
     Route: 048
  4. PARIET [Suspect]
     Active Substance: RABEPRAZOLE SODIUM
     Route: 048
  5. MOVICOL [Concomitant]
     Active Substance: POLYETHYLENE GLYCOL 3350\POTASSIUM CHLORIDE\SODIUM BICARBONATE\SODIUM CHLORIDE
     Route: 048
  6. INDAPAMIDE. [Suspect]
     Active Substance: INDAPAMIDE
     Route: 048
     Dates: end: 20150719
  7. TEMESTA [Suspect]
     Active Substance: LORAZEPAM
     Route: 048
  8. LEVOTHYROX [Concomitant]
     Active Substance: LEVOTHYROXINE
     Route: 048
  9. ALDACTONE [Suspect]
     Active Substance: SPIRONOLACTONE
     Route: 048
     Dates: end: 20150719

REACTIONS (2)
  - Hyponatraemia [Recovered/Resolved]
  - Fall [Recovered/Resolved]

NARRATIVE: CASE EVENT DATE: 20150719
